FAERS Safety Report 22364156 (Version 1)
Quarter: 2023Q2

REPORT INFORMATION
  Report Type: Spontaneous
  Country: US (occurrence: US)
  Receive Date: 20230525
  Receipt Date: 20230525
  Transmission Date: 20230722
  Serious: No
  Sender: FDA-Public Use
  Company Number: US-SA-SAC20230524000114

PATIENT
  Age: 59 Year
  Sex: Female

DRUGS (1)
  1. DUPIXENT [Suspect]
     Active Substance: DUPILUMAB
     Indication: Dermatitis atopic
     Dosage: 300 MG, QOW
     Route: 058
     Dates: start: 20221210

REACTIONS (6)
  - Discomfort [Unknown]
  - Sleep disorder [Unknown]
  - Skin ulcer [Unknown]
  - Drug ineffective [Unknown]
  - Pain of skin [Unknown]
  - Rash [Unknown]

NARRATIVE: CASE EVENT DATE: 20230401
